FAERS Safety Report 5803866-3 (Version None)
Quarter: 2008Q3

REPORT INFORMATION
  Report Type: 
  Country: None (occurrence: None)
  Receive Date: 20080707
  Receipt Date: 20080619
  Transmission Date: 20090109
  Serious: Yes (Life-Threatening, Other)
  Sender: FDA-Public Use
  Company Number: 2008S1011189

PATIENT
  Age: 67 Year
  Sex: Female

DRUGS (2)
  1. WARFARIN (WARFARIN) 5 MG; DAILY [Suspect]
     Dosage: 5 MG; DAILY
  2. CAPECITABINE (CAPECITABINE) [Suspect]
     Indication: BREAST CANCER METASTATIC

REACTIONS (4)
  - DRUG INTERACTION [None]
  - ECCHYMOSIS [None]
  - PURPURA [None]
  - SKIN HAEMORRHAGE [None]
